FAERS Safety Report 4317295-5 (Version None)
Quarter: 2004Q1

REPORT INFORMATION
  Report Type: 
  Country: None (occurrence: None)
  Receive Date: 20040305
  Receipt Date: 20040217
  Transmission Date: 20041129
  Serious: No
  Sender: FDA-Public Use
  Company Number: CART-10110

PATIENT
  Age: 46 Year
  Sex: Male

DRUGS (1)
  1. CARTICEL [Suspect]
     Indication: BONE DISORDER
     Dosage: 1 NA ONCE IS
     Dates: start: 19980213, end: 19980213

REACTIONS (11)
  - ADHESION [None]
  - ARTHRALGIA [None]
  - ARTHROPATHY [None]
  - EXOSTOSIS [None]
  - FAILURE OF IMPLANT [None]
  - GRAFT COMPLICATION [None]
  - JOINT EFFUSION [None]
  - JOINT INJURY [None]
  - JOINT SWELLING [None]
  - POST PROCEDURAL COMPLICATION [None]
  - SCAR [None]
